FAERS Safety Report 5512003-4 (Version None)
Quarter: 2007Q4

REPORT INFORMATION
  Report Type: 
  Country: None (occurrence: None)
  Receive Date: 20071109
  Receipt Date: 20071102
  Transmission Date: 20080405
  Serious: Yes (Hospitalization)
  Sender: FDA-Public Use
  Company Number: JP-MERCK-0711USA01631

PATIENT
  Age: 85 Year
  Sex: Female

DRUGS (2)
  1. PEPCID [Suspect]
     Route: 048
     Dates: start: 20070920, end: 20071010
  2. PRODIF [Suspect]
     Route: 041
     Dates: start: 20070924, end: 20071010

REACTIONS (1)
  - DRUG ERUPTION [None]
